FAERS Safety Report 13197321 (Version 3)
Quarter: 2017Q2

REPORT INFORMATION
  Report Type: Spontaneous
  Country: MX (occurrence: MX)
  Receive Date: 20170208
  Receipt Date: 20170501
  Transmission Date: 20170830
  Serious: Yes (Hospitalization, Other)
  Sender: FDA-Public Use
  Company Number: MX-JNJFOC-20170202889

PATIENT
  Age: 11 Year
  Sex: Male

DRUGS (4)
  1. FLUOXETINE [Concomitant]
     Active Substance: FLUOXETINE HYDROCHLORIDE
     Indication: ATTENTION DEFICIT/HYPERACTIVITY DISORDER
     Route: 065
  2. HALOPERIDOL. [Suspect]
     Active Substance: HALOPERIDOL
     Indication: ATTENTION DEFICIT/HYPERACTIVITY DISORDER
     Dosage: 0.7-0.9 MG OF HALOPERIDOL (0.35-0.45 ML / 7-9 DROPS)
     Route: 065
  3. METHYLPHENIDATE. [Concomitant]
     Active Substance: METHYLPHENIDATE
     Indication: ATTENTION DEFICIT/HYPERACTIVITY DISORDER
     Route: 065
  4. CARBAMAZEPINE. [Concomitant]
     Active Substance: CARBAMAZEPINE
     Indication: ATTENTION DEFICIT/HYPERACTIVITY DISORDER
     Route: 065

REACTIONS (12)
  - Arrhythmia [Recovering/Resolving]
  - Off label use [Unknown]
  - Bradyphrenia [Recovering/Resolving]
  - Hyperreflexia [Recovering/Resolving]
  - Unresponsive to stimuli [Recovering/Resolving]
  - Eye disorder [Recovering/Resolving]
  - Somnolence [Recovering/Resolving]
  - Hypertonia [Recovering/Resolving]
  - Intentional overdose [Unknown]
  - Muscle contracture [Recovering/Resolving]
  - Resting tremor [Recovering/Resolving]
  - Product use in unapproved indication [Unknown]
